FAERS Safety Report 24301787 (Version 1)
Quarter: 2024Q3

REPORT INFORMATION
  Report Type: Spontaneous
  Country: US (occurrence: US)
  Receive Date: 20240910
  Receipt Date: 20240910
  Transmission Date: 20241016
  Serious: Yes (Life-Threatening, Hospitalization, Other)
  Sender: PURACAP
  Company Number: US-PURACAP-US-2024EPCLIT01049

PATIENT
  Age: 14 Year
  Sex: Female
  Weight: 129 kg

DRUGS (1)
  1. AMLODIPINE [Suspect]
     Active Substance: AMLODIPINE BESYLATE
     Indication: Product used for unknown indication
     Route: 048

REACTIONS (3)
  - Shock [Recovered/Resolved]
  - Distributive shock [Recovered/Resolved]
  - Overdose [Unknown]
